FAERS Safety Report 5358241-5 (Version None)
Quarter: 2007Q2

REPORT INFORMATION
  Report Type: 
  Country: None (occurrence: None)
  Receive Date: 20070530
  Receipt Date: 20061116
  Transmission Date: 20071010
  Serious: Yes (Hospitalization)
  Sender: FDA-Public Use
  Company Number: US200603003271

PATIENT
  Age: 55 Year
  Sex: Female
  Weight: 70.3 kg

DRUGS (1)
  1. ZYPREXA [Suspect]
     Indication: BIPOLAR I DISORDER
     Dosage: 2.5 MG
     Dates: start: 20020101, end: 20040101

REACTIONS (9)
  - BILIARY TRACT DISORDER [None]
  - BLOOD CHOLESTEROL [None]
  - BLOOD TRIGLYCERIDES ABNORMAL [None]
  - CONVULSION [None]
  - DIABETES MELLITUS [None]
  - INSULIN RESISTANCE [None]
  - METABOLIC DISORDER [None]
  - OBESITY [None]
  - WEIGHT DECREASED [None]
